FAERS Safety Report 13009065 (Version 1)
Quarter: 2016Q4

REPORT INFORMATION
  Report Type: Spontaneous
  Country: IT (occurrence: IT)
  Receive Date: 20161208
  Receipt Date: 20161208
  Transmission Date: 20170207
  Serious: No
  Sender: FDA-Public Use
  Company Number: IT-JNJFOC-20161128311

PATIENT
  Age: 2 Month
  Sex: Female
  Weight: 3 kg

DRUGS (3)
  1. MIDAZOLAM [Suspect]
     Active Substance: MIDAZOLAM\MIDAZOLAM HYDROCHLORIDE
     Indication: SEDATION
     Route: 040
     Dates: start: 20161117
  2. KETAMINE [Suspect]
     Active Substance: KETAMINE
     Indication: SEDATION
     Route: 042
     Dates: start: 20161117
  3. FENTANYL. [Suspect]
     Active Substance: FENTANYL
     Indication: SEDATION
     Route: 065
     Dates: start: 20161117

REACTIONS (6)
  - Salivary hypersecretion [Recovering/Resolving]
  - Diarrhoea [Recovering/Resolving]
  - Crying [Recovering/Resolving]
  - Off label use [Unknown]
  - Agitation [Recovering/Resolving]
  - Product use issue [Unknown]

NARRATIVE: CASE EVENT DATE: 20161121
